FAERS Safety Report 5619339-7 (Version None)
Quarter: 2008Q1

REPORT INFORMATION
  Report Type: 
  Country: None (occurrence: None)
  Receive Date: 20080114
  Receipt Date: 20070228
  Transmission Date: 20080703
  Serious: Yes (Hospitalization)
  Sender: FDA-Public Use
  Company Number: A03200701786

PATIENT
  Sex: Male
  Weight: 74.83 kg

DRUGS (3)
  1. PLAVIX [Suspect]
     Dosage: 7G MG MONDAY THROUGH FRIDAY WITH NO CLOPIDOGREL ON SATURDAY OR SUNDAY
  2. PLAVIX [Suspect]
     Dosage: 75 MG QD - ORAL
     Route: 048
  3. CHOLESTEROL LOWERING MEDICATION NOS [Concomitant]

REACTIONS (2)
  - HAEMOPTYSIS [None]
  - MYOCARDIAL INFARCTION [None]
